FAERS Safety Report 4829584-6 (Version None)
Quarter: 2005Q4

REPORT INFORMATION
  Report Type: 
  Country: None (occurrence: None)
  Receive Date: 20051116
  Receipt Date: 20051102
  Transmission Date: 20060501
  Serious: Yes (Other)
  Sender: FDA-Public Use
  Company Number: JP-ROCHE-424484

PATIENT
  Age: 40 Year
  Sex: Male

DRUGS (6)
  1. CELLCEPT [Suspect]
     Dosage: STOPPED DUE TO DIARRHOEA.
     Route: 065
  2. CELLCEPT [Suspect]
     Dosage: RESTARTED AFTER DIARRHOEA RESOLVED.
     Route: 065
  3. CELLCEPT [Suspect]
     Dosage: DOSE REDUCED IN RESPONSE TO POLYMORPHONUCLEAR CHROMATIN CLUMPING.
     Route: 065
  4. SIMULECT [Concomitant]
  5. PREDONINE [Concomitant]
  6. CYCLOSPORINE [Concomitant]

REACTIONS (2)
  - DIARRHOEA [None]
  - POLYMORPHONUCLEAR CHROMATIN CLUMPING [None]
